FAERS Safety Report 24897298 (Version 1)
Quarter: 2025Q1

REPORT INFORMATION
  Report Type: Spontaneous
  Country: US (occurrence: US)
  Receive Date: 20250129
  Receipt Date: 20250129
  Transmission Date: 20250409
  Serious: No
  Sender: SANDOZ
  Company Number: US-SANDOZ-SDZ2025US005173

PATIENT
  Sex: Male
  Weight: 77 kg

DRUGS (3)
  1. FABHALTA [Suspect]
     Active Substance: IPTACOPAN HYDROCHLORIDE
     Indication: IgA nephropathy
     Dosage: 200 MG, BID
     Route: 048
  2. FABHALTA [Suspect]
     Active Substance: IPTACOPAN HYDROCHLORIDE
     Indication: Glomerulonephritis
  3. PENICILLIN G [Suspect]
     Active Substance: PENICILLIN G
     Indication: Prophylaxis
     Route: 065

REACTIONS (1)
  - Urine odour abnormal [Not Recovered/Not Resolved]
